FAERS Safety Report 16158113 (Version 1)
Quarter: 2019Q2

REPORT INFORMATION
  Report Type: Spontaneous
  Country: US (occurrence: US)
  Receive Date: 20190403
  Receipt Date: 20190403
  Transmission Date: 20190711
  Serious: Yes (Hospitalization)
  Sender: FDA-Public Use
  Company Number: None

PATIENT
  Age: 70 Year
  Sex: Female

DRUGS (13)
  1. ENTRESTO [Concomitant]
     Active Substance: SACUBITRIL\VALSARTAN
     Dates: start: 20190320
  2. TORSEMIDE. [Concomitant]
     Active Substance: TORSEMIDE
     Dates: start: 20180618
  3. ROBAFENAC [Concomitant]
     Dates: start: 20190401
  4. LEVEMIR [Concomitant]
     Active Substance: INSULIN DETEMIR
     Dates: start: 20190401
  5. GINGER ROOT [Concomitant]
     Active Substance: GINGER
     Dates: start: 20181127
  6. POTASSIUM CHLORIDE. [Concomitant]
     Active Substance: POTASSIUM CHLORIDE
     Dates: start: 20190401
  7. CALCITRIOL. [Concomitant]
     Active Substance: CALCITRIOL
     Dates: start: 20190324
  8. PRAVASTATIN. [Concomitant]
     Active Substance: PRAVASTATIN
     Dates: start: 20190320
  9. CASCARA SAGRANDA [Concomitant]
     Dates: start: 20181127
  10. IPRATROPIUM/ALBUTEROL [Concomitant]
     Active Substance: ALBUTEROL\IPRATROPIUM
     Dates: start: 20190401
  11. BUDESONIDE. [Concomitant]
     Active Substance: BUDESONIDE
     Dates: start: 20190401
  12. SILDENAFIL. [Suspect]
     Active Substance: SILDENAFIL
     Indication: PULMONARY ARTERIAL HYPERTENSION
     Route: 048
  13. DIAZEPAM. [Concomitant]
     Active Substance: DIAZEPAM
     Dates: start: 20190402

REACTIONS (2)
  - Pneumonia [None]
  - Influenza [None]

NARRATIVE: CASE EVENT DATE: 20190325
